FAERS Safety Report 4705438-0 (Version None)
Quarter: 2005Q3

REPORT INFORMATION
  Report Type: 
  Country: None (occurrence: None)
  Receive Date: 20050701
  Receipt Date: 20050620
  Transmission Date: 20060218
  Serious: Yes (Hospitalization)
  Sender: FDA-Public Use
  Company Number: FR-GLAXOSMITHKLINE-B0385746A

PATIENT
  Age: 71 Year
  Sex: Male

DRUGS (3)
  1. AUGMENTIN '125' [Suspect]
     Dosage: 3G PER DAY
     Dates: start: 20050310, end: 20050319
  2. SOLUPRED [Suspect]
     Route: 048
     Dates: start: 20050310, end: 20050319
  3. RULID [Concomitant]
     Indication: BRONCHITIS
     Route: 048
     Dates: start: 20050214, end: 20050221

REACTIONS (11)
  - ASTHENIA [None]
  - BLOOD ALKALINE PHOSPHATASE INCREASED [None]
  - BLOOD BILIRUBIN INCREASED [None]
  - CHOLESTASIS [None]
  - CHROMATURIA [None]
  - HEPATOCELLULAR DAMAGE [None]
  - JAUNDICE [None]
  - PRURITUS [None]
  - SERUM FERRITIN INCREASED [None]
  - TRANSAMINASES INCREASED [None]
  - WEIGHT DECREASED [None]
